FAERS Safety Report 18813464 (Version 2)
Quarter: 2021Q1

REPORT INFORMATION
  Report Type: Report from Study
  Country: None (occurrence: US)
  Receive Date: 20210201
  Receipt Date: 20210327
  Transmission Date: 20210419
  Serious: Yes (Hospitalization)
  Sender: FDA-Public Use
  Company Number: US-ABBVIE-20K-163-3658114-00

PATIENT
  Age: 54 Year
  Sex: Female

DRUGS (2)
  1. RINVOQ [Suspect]
     Active Substance: UPADACITINIB
     Route: 048
     Dates: start: 20210313
  2. RINVOQ [Suspect]
     Active Substance: UPADACITINIB
     Indication: RHEUMATOID ARTHRITIS
     Route: 048
     Dates: start: 20200829, end: 202103

REACTIONS (5)
  - COVID-19 pneumonia [Not Recovered/Not Resolved]
  - Stomatitis [Not Recovered/Not Resolved]
  - COVID-19 [Not Recovered/Not Resolved]
  - Rheumatoid arthritis [Not Recovered/Not Resolved]
  - Mouth ulceration [Not Recovered/Not Resolved]

NARRATIVE: CASE EVENT DATE: 202101
